FAERS Safety Report 8322226-7 (Version None)
Quarter: 2012Q2

REPORT INFORMATION
  Report Type: 
  Country: None (occurrence: None)
  Receive Date: 20120430
  Receipt Date: 20120223
  Transmission Date: 20120825
  Serious: No
  Sender: FDA-Public Use
  Company Number: US-COVIDIEN/TYCO HEALTHCARE/MALLINCKRODT-T201200706

PATIENT
  Sex: Male
  Weight: 93.424 kg

DRUGS (13)
  1. FENTANYL-100 [Suspect]
     Indication: ARTHRITIS
     Dosage: 75 UG/HR Q 72 HOURS
     Route: 062
     Dates: start: 20120201
  2. FENTANYL-100 [Suspect]
     Indication: GROIN PAIN
  3. FIBERCON [Concomitant]
  4. VYTORIN [Concomitant]
  5. HYDROCODONE BITARTRATE + ACETAMINOPHEN [Suspect]
     Indication: PAIN
     Dosage: TOOK ONE TABLET AND THEN THREE HOURS LATER TOOK A SECOND DOSE
     Route: 048
  6. METOPROLOL TARTRATE [Concomitant]
  7. PRINIVIL [Concomitant]
  8. LUCENTIS [Concomitant]
     Indication: MACULAR DEGENERATION
     Dosage: Q 4 WEEKS
  9. FENTANYL-100 [Concomitant]
     Indication: ARTHRITIS
     Dosage: STARTED 15 MCG/HR, TITRATED UP TO 75 MCG/HR
     Route: 062
     Dates: start: 20111201, end: 20110201
  10. FENTANYL-100 [Concomitant]
     Indication: GROIN PAIN
  11. FISH OIL [Concomitant]
  12. TRAMAZOLINE HYDROCHLORIDE [Concomitant]
  13. TRAZODONE HCL [Concomitant]

REACTIONS (5)
  - DRUG EFFECT INCREASED [None]
  - CHILLS [None]
  - COLD SWEAT [None]
  - MIDDLE INSOMNIA [None]
  - FEELING ABNORMAL [None]
